FAERS Safety Report 26186376 (Version 1)
Quarter: 2025Q4

REPORT INFORMATION
  Report Type: Spontaneous
  Country: US (occurrence: US)
  Receive Date: 20251222
  Receipt Date: 20251222
  Transmission Date: 20260118
  Serious: No
  Sender: ABBVIE
  Company Number: US-ABBVIE-6595405

PATIENT
  Age: 51 Year
  Sex: Female

DRUGS (2)
  1. QULIPTA [Suspect]
     Active Substance: ATOGEPANT
     Indication: Product used for unknown indication
     Dosage: UNKNOWN
     Route: 048
     Dates: start: 2025
  2. OXITRIPTAN [Suspect]
     Active Substance: OXITRIPTAN
     Indication: Product used for unknown indication
     Route: 065
     Dates: start: 2025

REACTIONS (6)
  - Feeling abnormal [Unknown]
  - Pain in extremity [Unknown]
  - Chest pain [Unknown]
  - Chest discomfort [Unknown]
  - Headache [Unknown]
  - Inappropriate schedule of product administration [Unknown]

NARRATIVE: CASE EVENT DATE: 20250101
